FAERS Safety Report 11628730 (Version 1)
Quarter: 2015Q4

REPORT INFORMATION
  Report Type: Report from Study
  Country: IT (occurrence: IT)
  Receive Date: 20151014
  Receipt Date: 20151014
  Transmission Date: 20160304
  Serious: Yes (Death, Other)
  Sender: FDA-Public Use
  Company Number: IT-BAXTER-2015BAX056074

PATIENT

DRUGS (45)
  1. ASPARAGINASE [Suspect]
     Active Substance: ASPARAGINASE
     Indication: NON-HODGKIN^S LYMPHOMA
     Dosage: 5000 UNIT/M^2/DAY
     Route: 030
  2. VINCRISTINE [Suspect]
     Active Substance: VINCRISTINE
     Dosage: MAINTENANCE PART 1
     Route: 042
  3. METHOTREXATE [Suspect]
     Active Substance: METHOTREXATE
     Dosage: REINDUCTION
     Route: 037
  4. CYTOSINE ARABINOSIDE [Suspect]
     Active Substance: CYTARABINE
     Dosage: CONSOLIDATION
     Route: 042
  5. CYTOSINE ARABINOSIDE [Suspect]
     Active Substance: CYTARABINE
     Dosage: 3 G/M2 EVERY 12HOUR IN 3 HOUR- HIGH DOSE
     Route: 042
  6. PREDNISOLONE. [Suspect]
     Active Substance: PREDNISOLONE
     Dosage: MAINTENANCE PART 1
     Route: 037
  7. ENDOXAN BAXTER [Suspect]
     Active Substance: CYCLOPHOSPHAMIDE
     Route: 042
  8. PREDNISONE. [Suspect]
     Active Substance: PREDNISONE
     Dosage: MAINTENANCE PART 2
     Route: 048
  9. METHOTREXATE [Suspect]
     Active Substance: METHOTREXATE
     Route: 048
  10. CYTOSINE ARABINOSIDE [Suspect]
     Active Substance: CYTARABINE
     Dosage: REINDUCTION
     Route: 042
  11. L-LEUCOVORIN [Suspect]
     Active Substance: LEUCOVORIN
     Dosage: INDUCTION
     Route: 042
  12. VINCRISTINE [Suspect]
     Active Substance: VINCRISTINE
     Indication: NON-HODGKIN^S LYMPHOMA
     Route: 042
  13. VINCRISTINE [Suspect]
     Active Substance: VINCRISTINE
     Dosage: REINDUCTION
     Route: 042
  14. METHOTREXATE [Suspect]
     Active Substance: METHOTREXATE
     Dosage: 3 G/M2/DAY IN 24HR (HIGH DOSE) CONSOLIDATION
     Route: 042
  15. METHOTREXATE [Suspect]
     Active Substance: METHOTREXATE
     Dosage: CONSOLIDATION
     Route: 037
  16. METHOTREXATE [Suspect]
     Active Substance: METHOTREXATE
     Dosage: MAINTENANCE PART 1
     Route: 037
  17. CYTOSINE ARABINOSIDE [Suspect]
     Active Substance: CYTARABINE
     Dosage: MAINTAINENCE PART 1
     Route: 042
  18. MERCAPTOPURINE. [Suspect]
     Active Substance: MERCAPTOPURINE
     Dosage: MAINTENANCE PART 2
     Route: 048
  19. L-LEUCOVORIN [Suspect]
     Active Substance: LEUCOVORIN
     Dosage: REINDUCTION
     Route: 042
  20. CYTOSINE ARABINOSIDE [Suspect]
     Active Substance: CYTARABINE
     Dosage: CONSOLIDATION
     Route: 037
  21. PREDNISOLONE. [Suspect]
     Active Substance: PREDNISOLONE
     Dosage: CONSOLIDATION
     Route: 037
  22. DEXAMETHASONE. [Suspect]
     Active Substance: DEXAMETHASONE
     Indication: NON-HODGKIN^S LYMPHOMA
     Dosage: REINDUCTION
     Route: 065
  23. ENDOXAN BAXTER [Suspect]
     Active Substance: CYCLOPHOSPHAMIDE
     Indication: NON-HODGKIN^S LYMPHOMA
     Route: 042
  24. METHOTREXATE [Suspect]
     Active Substance: METHOTREXATE
     Dosage: MAINTENANCE PART II
     Route: 030
  25. CYTOSINE ARABINOSIDE [Suspect]
     Active Substance: CYTARABINE
     Indication: NON-HODGKIN^S LYMPHOMA
     Dosage: INDUCTION
     Route: 037
  26. PREDNISOLONE. [Suspect]
     Active Substance: PREDNISOLONE
     Dosage: REINDUCTION
     Route: 037
  27. ENDOXAN BAXTER [Suspect]
     Active Substance: CYCLOPHOSPHAMIDE
     Dosage: REINDUCTION
     Route: 042
  28. DAUNORUBICIN [Suspect]
     Active Substance: DAUNORUBICIN
     Indication: NON-HODGKIN^S LYMPHOMA
     Route: 042
  29. METHOTREXATE [Suspect]
     Active Substance: METHOTREXATE
     Dosage: INDUCTION
     Route: 037
  30. METHOTREXATE [Suspect]
     Active Substance: METHOTREXATE
     Dosage: 3 G/M2/DAY IN 24HR (HIGH DOSE) REINDUCTION
     Route: 042
  31. MERCAPTOPURINE. [Suspect]
     Active Substance: MERCAPTOPURINE
     Indication: NON-HODGKIN^S LYMPHOMA
     Dosage: CONSOLIDATION
     Route: 048
  32. ETOPOSIDE. [Suspect]
     Active Substance: ETOPOSIDE
     Indication: NON-HODGKIN^S LYMPHOMA
     Dosage: CONSOLIDATION
     Route: 042
  33. THIOGUANINE [Suspect]
     Active Substance: THIOGUANINE
     Dosage: MAINTAINENCE PART 1
     Route: 048
  34. METHOTREXATE [Suspect]
     Active Substance: METHOTREXATE
     Indication: NON-HODGKIN^S LYMPHOMA
     Dosage: 5 G/M2 IN 24 HOURS (HIGH DOSE) INDUCTION
     Route: 042
  35. CYTOSINE ARABINOSIDE [Suspect]
     Active Substance: CYTARABINE
     Dosage: MAINTENANCE PART 1
     Route: 037
  36. THIOGUANINE [Suspect]
     Active Substance: THIOGUANINE
     Indication: NON-HODGKIN^S LYMPHOMA
     Dosage: REINDUCTION
     Route: 048
  37. L-LEUCOVORIN [Suspect]
     Active Substance: LEUCOVORIN
     Indication: CHEMOTHERAPY TOXICITY ATTENUATION
     Dosage: INDUCTION
     Route: 042
  38. ENDOXAN BAXTER [Suspect]
     Active Substance: CYCLOPHOSPHAMIDE
     Dosage: MAINTENANCE PART 1
     Route: 042
  39. ASPARAGINASE [Suspect]
     Active Substance: ASPARAGINASE
     Dosage: 5000 U/M^2/DAY (REINDUCTION)
     Route: 030
  40. PREDNISONE. [Suspect]
     Active Substance: PREDNISONE
     Indication: NON-HODGKIN^S LYMPHOMA
     Dosage: INDUCTION
     Route: 048
  41. CYTOSINE ARABINOSIDE [Suspect]
     Active Substance: CYTARABINE
     Dosage: REINDUCTION
     Route: 037
  42. PREDNISOLONE. [Suspect]
     Active Substance: PREDNISOLONE
     Indication: NON-HODGKIN^S LYMPHOMA
     Dosage: INDUCTION
     Route: 037
  43. ETOPOSIDE. [Suspect]
     Active Substance: ETOPOSIDE
     Dosage: MAINTAINENCE PART 1
     Route: 042
  44. DOXORUBICIN [Suspect]
     Active Substance: DOXORUBICIN
     Indication: NON-HODGKIN^S LYMPHOMA
     Dosage: REINDUCTION
     Route: 042
  45. L-LEUCOVORIN [Suspect]
     Active Substance: LEUCOVORIN
     Dosage: CONSOLIDATION
     Route: 042

REACTIONS (2)
  - Non-Hodgkin^s lymphoma recurrent [Not Recovered/Not Resolved]
  - Disease progression [Fatal]
